FAERS Safety Report 19636876 (Version 1)
Quarter: 2021Q3

REPORT INFORMATION
  Report Type: Spontaneous
  Country: PT (occurrence: PT)
  Receive Date: 20210730
  Receipt Date: 20210730
  Transmission Date: 20211014
  Serious: Yes (Other)
  Sender: FDA-Public Use
  Company Number: PT-HIKMA PHARMACEUTICALS USA INC.-PT-H14001-21-55090

PATIENT
  Age: 25 Year
  Sex: Female

DRUGS (1)
  1. CEFAZOLIN HIKMA [Suspect]
     Active Substance: CEFAZOLIN
     Indication: PLASTIC SURGERY
     Route: 042
     Dates: start: 20210705, end: 20210705

REACTIONS (1)
  - Pruritus [Recovered/Resolved]

NARRATIVE: CASE EVENT DATE: 20210705
